FAERS Safety Report 10540373 (Version 3)
Quarter: 2014Q4

REPORT INFORMATION
  Report Type: Spontaneous
  Country: GB (occurrence: None)
  Receive Date: 20141022
  Receipt Date: 20141224
  Transmission Date: 20150529
  Serious: Yes (Disabling, Other)
  Sender: FDA-Public Use
  Company Number: GB-20140041

PATIENT
  Age: 45 Year
  Sex: Female

DRUGS (15)
  1. DOTAREM [Suspect]
     Active Substance: GADOTERATE MEGLUMINE
     Indication: MYOPATHY
     Dosage: 20 ML (20 ML, 1 IN 1 D), INRAVENOUS (NOT OTHERWISE SPECIFIED)?
     Route: 042
     Dates: start: 20140918, end: 20140918
  2. DOTAREM [Suspect]
     Active Substance: GADOTERATE MEGLUMINE
     Indication: DYSURIA
     Dosage: 20 ML (20 ML, 1 IN 1 D), INRAVENOUS (NOT OTHERWISE SPECIFIED)?
     Route: 042
     Dates: start: 20140918, end: 20140918
  3. DOTAREM [Suspect]
     Active Substance: GADOTERATE MEGLUMINE
     Indication: OROPHARYNGEAL PAIN
     Dosage: 20 ML (20 ML, 1 IN 1 D), INRAVENOUS (NOT OTHERWISE SPECIFIED)?
     Route: 042
     Dates: start: 20140918, end: 20140918
  4. HYDROXYCHLOROQUINE [Concomitant]
     Active Substance: HYDROXYCHLOROQUINE
  5. DOTAREM [Suspect]
     Active Substance: GADOTERATE MEGLUMINE
     Indication: NUCLEAR MAGNETIC RESONANCE IMAGING
     Dosage: 20 ML (20 ML, 1 IN 1 D), INRAVENOUS (NOT OTHERWISE SPECIFIED)?
     Route: 042
     Dates: start: 20140918, end: 20140918
  6. DOTAREM [Suspect]
     Active Substance: GADOTERATE MEGLUMINE
     Indication: INFLUENZA LIKE ILLNESS
     Dosage: 20 ML (20 ML, 1 IN 1 D), INRAVENOUS (NOT OTHERWISE SPECIFIED)?
     Route: 042
     Dates: start: 20140918, end: 20140918
  7. THYROXINE (LEVOTHYROXINE SODIUM) [Concomitant]
     Active Substance: LEVOTHYROXINE
  8. DOTAREM [Suspect]
     Active Substance: GADOTERATE MEGLUMINE
     Indication: RASH
     Dosage: 20 ML (20 ML, 1 IN 1 D), INRAVENOUS (NOT OTHERWISE SPECIFIED)?
     Route: 042
     Dates: start: 20140918, end: 20140918
  9. DOTAREM [Suspect]
     Active Substance: GADOTERATE MEGLUMINE
     Indication: DYSGEUSIA
     Dosage: 20 ML (20 ML, 1 IN 1 D), INRAVENOUS (NOT OTHERWISE SPECIFIED)?
     Route: 042
     Dates: start: 20140918, end: 20140918
  10. DOTAREM [Suspect]
     Active Substance: GADOTERATE MEGLUMINE
     Indication: JOINT STIFFNESS
     Dosage: 20 ML (20 ML, 1 IN 1 D), INRAVENOUS (NOT OTHERWISE SPECIFIED)?
     Route: 042
     Dates: start: 20140918, end: 20140918
  11. DOTAREM [Suspect]
     Active Substance: GADOTERATE MEGLUMINE
     Indication: DIABETES INSIPIDUS
     Dosage: 20 ML (20 ML, 1 IN 1 D), INRAVENOUS (NOT OTHERWISE SPECIFIED)?
     Route: 042
     Dates: start: 20140918, end: 20140918
  12. DOTAREM [Suspect]
     Active Substance: GADOTERATE MEGLUMINE
     Indication: URINE OSMOLARITY DECREASED
     Dosage: 20 ML (20 ML, 1 IN 1 D), INRAVENOUS (NOT OTHERWISE SPECIFIED)?
     Route: 042
     Dates: start: 20140918, end: 20140918
  13. DOTAREM [Suspect]
     Active Substance: GADOTERATE MEGLUMINE
     Indication: BURNING SENSATION
     Dosage: 20 ML (20 ML, 1 IN 1 D), INRAVENOUS (NOT OTHERWISE SPECIFIED)?
     Route: 042
     Dates: start: 20140918, end: 20140918
  14. DOTAREM [Suspect]
     Active Substance: GADOTERATE MEGLUMINE
     Indication: CHILLS
     Dosage: 20 ML (20 ML, 1 IN 1 D), INRAVENOUS (NOT OTHERWISE SPECIFIED)?
     Route: 042
     Dates: start: 20140918, end: 20140918
  15. FERROUS SULFATE [Concomitant]
     Active Substance: FERROUS SULFATE\FERROUS SULFATE, DRIED

REACTIONS (12)
  - Chills [None]
  - Myopathy [None]
  - Urine osmolarity decreased [None]
  - Diabetes insipidus [None]
  - Joint stiffness [None]
  - Dysuria [None]
  - Rash [None]
  - Dysgeusia [None]
  - Influenza like illness [None]
  - Burning sensation [None]
  - Oropharyngeal pain [None]
  - Fatigue [None]

NARRATIVE: CASE EVENT DATE: 20140918
